FAERS Safety Report 5320296-1 (Version None)
Quarter: 2007Q2

REPORT INFORMATION
  Report Type: 
  Country: None (occurrence: None)
  Receive Date: 20070503
  Receipt Date: 20070503
  Transmission Date: 20071010
  Serious: Yes (Other)
  Sender: FDA-Public Use
  Company Number: None

PATIENT
  Age: 81 Year
  Sex: Female
  Weight: 54.8852 kg

DRUGS (1)
  1. IRON DEXTRAN [Suspect]
     Indication: ANAEMIA
     Dosage: 10MG ONE TIME DOSE IV DRIP
     Route: 041
     Dates: start: 20070430, end: 20070430

REACTIONS (4)
  - DYSPNOEA [None]
  - ERYTHEMA [None]
  - FLUSHING [None]
  - VOMITING [None]
